FAERS Safety Report 6282103-2 (Version None)
Quarter: 2009Q3

REPORT INFORMATION
  Report Type: 
  Country: None (occurrence: None)
  Receive Date: 20090724
  Receipt Date: 20090714
  Transmission Date: 20100115
  Serious: Yes (Other)
  Sender: FDA-Public Use
  Company Number: CA-JNJFOC-20090704675

PATIENT
  Sex: Male
  Weight: 63.6 kg

DRUGS (3)
  1. REMICADE [Suspect]
     Indication: ANKYLOSING SPONDYLITIS
     Dosage: 25 INFUSIONS
     Route: 042
  2. REMICADE [Suspect]
     Indication: CROHN'S DISEASE
     Route: 042
  3. TYLENOL [Concomitant]
     Indication: PREMEDICATION

REACTIONS (2)
  - PALPITATIONS [None]
  - THROMBOSIS [None]
